FAERS Safety Report 26066283 (Version 1)
Quarter: 2025Q4

REPORT INFORMATION
  Report Type: Spontaneous
  Country: GB (occurrence: GB)
  Receive Date: 20251119
  Receipt Date: 20251119
  Transmission Date: 20260117
  Serious: Yes (Death, Other)
  Sender: ELI LILLY AND COMPANY
  Company Number: GB-MHRA-37564764

PATIENT
  Age: 41 Year
  Sex: Male
  Weight: 159 kg

DRUGS (1)
  1. MOUNJARO [Suspect]
     Active Substance: TIRZEPATIDE
     Indication: Weight control
     Dosage: UNK UNK, UNKNOWN
     Route: 065
     Dates: start: 202505

REACTIONS (6)
  - Peritonitis [Fatal]
  - Duodenal ulcer perforation [Unknown]
  - Cardiac arrest [Not Recovered/Not Resolved]
  - Cholelithiasis [Unknown]
  - Chest pain [Unknown]
  - Muscle strain [Unknown]

NARRATIVE: CASE EVENT DATE: 20250619
